FAERS Safety Report 7348203-0 (Version None)
Quarter: 2011Q1

REPORT INFORMATION
  Report Type: 
  Country: None (occurrence: None)
  Receive Date: 20110311
  Receipt Date: 20110302
  Transmission Date: 20110831
  Serious: Yes (Hospitalization)
  Sender: FDA-Public Use
  Company Number: JP-ASTRAZENECA-2010SE59920

PATIENT
  Age: 69 Year
  Sex: Male
  Weight: 48 kg

DRUGS (7)
  1. NITROPEN [Concomitant]
     Indication: ANGINA PECTORIS
     Route: 048
  2. GASTER [Concomitant]
     Indication: GASTRITIS
     Route: 048
  3. BLOPRESS [Suspect]
     Indication: HYPERTENSION
     Route: 048
  4. AMLODIN OD [Concomitant]
     Indication: HYPERTENSION
     Route: 048
  5. ASPIRIN [Concomitant]
     Indication: THROMBOSIS PROPHYLAXIS
     Route: 048
  6. CARDENALIN [Concomitant]
     Indication: HYPERTENSION
     Route: 048
  7. SPIRIVA [Concomitant]
     Indication: EMPHYSEMA
     Dosage: DAILY
     Route: 055

REACTIONS (2)
  - EMPHYSEMA [None]
  - CARDIAC FAILURE [None]
